FAERS Safety Report 5596463-9 (Version None)
Quarter: 2007Q4

REPORT INFORMATION
  Report Type: 
  Country: None (occurrence: None)
  Receive Date: 20071218
  Receipt Date: 20070108
  Transmission Date: 20080405
  Serious: Yes (Hospitalization, Disabling, Other)
  Sender: FDA-Public Use
  Company Number: 2006081737

PATIENT
  Age: 68 Year
  Sex: Male
  Weight: 94.3 kg

DRUGS (4)
  1. BEXTRA [Suspect]
     Indication: OSTEOARTHRITIS
     Dosage: 20 MG (20 MG,1 IN 1 D)
     Dates: start: 20040101, end: 20040702
  2. BEXTRA [Suspect]
     Indication: PAIN
     Dosage: 20 MG (20 MG,1 IN 1 D)
     Dates: start: 20040101, end: 20040702
  3. CELEBREX [Suspect]
     Indication: PAIN
     Dates: start: 20020517, end: 20031028
  4. VIOXX [Suspect]
     Indication: MUSCULOSKELETAL PAIN
     Dosage: 25 MG (25 MG,1 IN 1 D)
     Dates: start: 20031029, end: 20040620

REACTIONS (1)
  - MYOCARDIAL INFARCTION [None]
